FAERS Safety Report 7224591-0 (Version None)
Quarter: 2011Q1

REPORT INFORMATION
  Report Type: 
  Country: None (occurrence: None)
  Receive Date: 20110113
  Receipt Date: 20110106
  Transmission Date: 20110831
  Serious: Yes (Other)
  Sender: FDA-Public Use
  Company Number: US-PFIZER INC-HQWYE693511OCT04

PATIENT
  Sex: Female

DRUGS (4)
  1. CYCRIN [Suspect]
     Indication: HORMONE REPLACEMENT THERAPY
     Dosage: UNK
  2. PREMARIN [Suspect]
     Indication: HORMONE REPLACEMENT THERAPY
     Dosage: UNK
  3. PROVERA [Suspect]
     Indication: HORMONE REPLACEMENT THERAPY
     Dosage: UNK
  4. MEDROXYPROGESTERONE [Suspect]
     Indication: HORMONE REPLACEMENT THERAPY
     Dosage: UNK

REACTIONS (1)
  - BREAST CANCER [None]
